FAERS Safety Report 7740929-X (Version None)
Quarter: 2011Q3

REPORT INFORMATION
  Report Type: 
  Country: None (occurrence: None)
  Receive Date: 20110909
  Receipt Date: 20110826
  Transmission Date: 20111222
  Serious: Yes (Hospitalization)
  Sender: FDA-Public Use
  Company Number: PHHY2011BR76999

PATIENT
  Sex: Female

DRUGS (3)
  1. ASPIRIN [Concomitant]
  2. PROPRANOLOL [Concomitant]
     Dosage: 40 MG, UNK
  3. DIOVAN HCT [Suspect]

REACTIONS (5)
  - VISUAL IMPAIRMENT [None]
  - PARAESTHESIA [None]
  - DYSPNOEA [None]
  - CEREBROVASCULAR ACCIDENT [None]
  - VISION BLURRED [None]
